FAERS Safety Report 7550109-9 (Version None)
Quarter: 2011Q2

REPORT INFORMATION
  Report Type: 
  Country: None (occurrence: None)
  Receive Date: 20110525
  Receipt Date: 20110225
  Transmission Date: 20111010
  Serious: No
  Sender: FDA-Public Use
  Company Number: 324041

PATIENT
  Age: 68 Year
  Sex: Female

DRUGS (4)
  1. VICTOZA [Suspect]
     Indication: TYPE 2 DIABETES MELLITUS
     Dosage: 1.8 MG, QD, SUBCUTANEOUS ; 1.2 MG, QD, SUBCUTANEOUS ; 0.6 MG, QD, SUBCUTANEOUS
     Route: 058
     Dates: start: 20101201
  2. GLIMEPIRIDE [Concomitant]
  3. AMARYL [Concomitant]
  4. METFORMIN HCL [Concomitant]

REACTIONS (2)
  - WEIGHT DECREASED [None]
  - BLOOD GLUCOSE INCREASED [None]
